FAERS Safety Report 4883752-6 (Version None)
Quarter: 2006Q1

REPORT INFORMATION
  Report Type: 
  Country: None (occurrence: None)
  Receive Date: 20060118
  Receipt Date: 20051017
  Transmission Date: 20060701
  Serious: Yes (Other)
  Sender: FDA-Public Use
  Company Number: US-ROCHE-421650

PATIENT
  Age: 58 Year
  Sex: Male

DRUGS (2)
  1. PEGASYS [Suspect]
     Route: 058
     Dates: start: 20050415
  2. COPEGUS [Suspect]
     Route: 048
     Dates: start: 20050415

REACTIONS (6)
  - BLADDER NEOPLASM [None]
  - FATIGUE [None]
  - HAEMATURIA [None]
  - INSOMNIA [None]
  - PLATELET COUNT DECREASED [None]
  - WHITE BLOOD CELL COUNT DECREASED [None]
